FAERS Safety Report 6042268-4 (Version None)
Quarter: 2009Q1

REPORT INFORMATION
  Report Type: 
  Country: None (occurrence: None)
  Receive Date: 20090116
  Receipt Date: 20090103
  Transmission Date: 20090719
  Serious: Yes (Other)
  Sender: FDA-Public Use
  Company Number: US-PFIZER INC-2008095692

PATIENT
  Sex: Male
  Weight: 99.8 kg

DRUGS (13)
  1. LYRICA [Suspect]
     Route: 048
     Dates: start: 20080101
  2. GEMFIBROZIL [Concomitant]
  3. INSULIN GLULISINE [Concomitant]
  4. INSULIN DETEMIR [Concomitant]
  5. LISINOPRIL [Concomitant]
  6. METFORMIN HCL [Concomitant]
  7. METOPROLOL [Concomitant]
  8. REQUIP [Concomitant]
  9. AVANDIA [Concomitant]
  10. SPIRONOLACTONE [Concomitant]
  11. TESTOSTERONE [Concomitant]
  12. NOVOLOG [Concomitant]
  13. NIASPAN [Concomitant]

REACTIONS (4)
  - BLOOD GLUCOSE INCREASED [None]
  - DEPRESSION [None]
  - GLYCOSYLATED HAEMOGLOBIN INCREASED [None]
  - WEIGHT INCREASED [None]
